FAERS Safety Report 23935752 (Version 1)
Quarter: 2024Q2

REPORT INFORMATION
  Report Type: Spontaneous
  Country: US (occurrence: US)
  Receive Date: 20240604
  Receipt Date: 20240604
  Transmission Date: 20240716
  Serious: Yes (Hospitalization, Other)
  Sender: FDA-Public Use
  Company Number: US-STERISCIENCE B.V.-2023-ST-001940

PATIENT
  Sex: Female

DRUGS (8)
  1. METOPROLOL [Suspect]
     Active Substance: METOPROLOL
     Indication: Ventricular tachycardia
     Dosage: UNK
     Route: 065
  2. METOPROLOL [Suspect]
     Active Substance: METOPROLOL
     Indication: Ventricular fibrillation
  3. NADOLOL [Suspect]
     Active Substance: NADOLOL
     Indication: Ventricular tachycardia
     Dosage: UNK
     Route: 065
  4. NADOLOL [Suspect]
     Active Substance: NADOLOL
     Indication: Ventricular fibrillation
  5. PROPRANOLOL [Suspect]
     Active Substance: PROPRANOLOL HYDROCHLORIDE
     Indication: Ventricular tachycardia
     Dosage: UNK
     Route: 065
  6. PROPRANOLOL [Suspect]
     Active Substance: PROPRANOLOL HYDROCHLORIDE
     Indication: Ventricular fibrillation
  7. BISOPROLOL [Suspect]
     Active Substance: BISOPROLOL\BISOPROLOL FUMARATE
     Indication: Ventricular tachycardia
     Dosage: UNK
     Route: 065
  8. BISOPROLOL [Suspect]
     Active Substance: BISOPROLOL\BISOPROLOL FUMARATE
     Indication: Ventricular fibrillation

REACTIONS (4)
  - Drug ineffective for unapproved indication [Unknown]
  - Sedation [Unknown]
  - Fatigue [Unknown]
  - Depression [Unknown]
